FAERS Safety Report 4637660-6 (Version None)
Quarter: 2005Q2

REPORT INFORMATION
  Report Type: 
  Country: None (occurrence: None)
  Receive Date: 20050418
  Receipt Date: 20050411
  Transmission Date: 20051028
  Serious: Yes (Other)
  Sender: FDA-Public Use
  Company Number: IT-GLAXOSMITHKLINE-B0378129A

PATIENT
  Age: 26 Year
  Sex: Female

DRUGS (1)
  1. AUGMENTIN '125' [Suspect]
     Indication: TOOTH DISORDER
     Dosage: 1000MG PER DAY
     Route: 048
     Dates: start: 20050407, end: 20050407

REACTIONS (2)
  - RASH [None]
  - SUFFOCATION FEELING [None]
